FAERS Safety Report 23822246 (Version 2)
Quarter: 2024Q2

REPORT INFORMATION
  Report Type: Other
  Country: JP (occurrence: JP)
  Receive Date: 20240506
  Receipt Date: 20240528
  Transmission Date: 20240716
  Serious: Yes (Hospitalization, Other)
  Sender: FDA-Public Use
  Company Number: JP-CHUGAI-2024014538

PATIENT
  Age: 49 Year
  Sex: Female

DRUGS (1)
  1. MYCOPHENOLATE MOFETIL [Suspect]
     Active Substance: MYCOPHENOLATE MOFETIL
     Indication: Systemic lupus erythematosus
     Route: 065

REACTIONS (8)
  - Vasculitis [Unknown]
  - Cerebral ventricular rupture [Unknown]
  - Altered state of consciousness [Recovering/Resolving]
  - Putamen haemorrhage [Unknown]
  - Herpes zoster [Unknown]
  - Meningitis viral [Unknown]
  - Varicella zoster virus infection [Unknown]
  - Off label use [Unknown]
